FAERS Safety Report 17460025 (Version 1)
Quarter: 2020Q1

REPORT INFORMATION
  Report Type: Spontaneous
  Country: US (occurrence: US)
  Receive Date: 20200226
  Receipt Date: 20200226
  Transmission Date: 20200409
  Serious: Yes (Other)
  Sender: FDA-Public Use
  Company Number: US-MYLANLABS-2020M1021177

PATIENT
  Age: 54 Year
  Sex: Female

DRUGS (5)
  1. BUDESONIDE. [Suspect]
     Active Substance: BUDESONIDE
     Indication: COLITIS MICROSCOPIC
     Route: 065
     Dates: end: 201903
  2. STELARA [Concomitant]
     Active Substance: USTEKINUMAB
     Dosage: BOOSTER DOSE
     Route: 058
     Dates: start: 201903
  3. AZATHIOPRINE. [Concomitant]
     Active Substance: AZATHIOPRINE
     Indication: COLITIS MICROSCOPIC
     Dosage: UNK
     Route: 065
     Dates: start: 201901
  4. METHOTREXATE. [Concomitant]
     Active Substance: METHOTREXATE
     Indication: COLITIS MICROSCOPIC
     Route: 065
     Dates: end: 201901
  5. STELARA [Concomitant]
     Active Substance: USTEKINUMAB
     Indication: COLITIS MICROSCOPIC
     Dosage: UNK
     Route: 065
     Dates: start: 2015

REACTIONS (1)
  - Treatment failure [Unknown]
